FAERS Safety Report 4566609-X (Version None)
Quarter: 2005Q1

REPORT INFORMATION
  Report Type: 
  Country: None (occurrence: None)
  Receive Date: 20050201
  Receipt Date: 20050120
  Transmission Date: 20050727
  Serious: Yes (Death, Hospitalization)
  Sender: FDA-Public Use
  Company Number: FR-BRISTOL-MYERS SQUIBB COMPANY-12833711

PATIENT
  Age: 85 Year
  Sex: Female

DRUGS (5)
  1. MUCOMYST [Suspect]
     Indication: COUGH
     Route: 048
     Dates: start: 20030527, end: 20030622
  2. KALEORID [Suspect]
     Route: 048
     Dates: start: 20030516, end: 20030622
  3. LASILIX [Suspect]
     Indication: ANGINA PECTORIS
     Route: 048
     Dates: start: 20030516, end: 20030622
  4. VASTAREL [Suspect]
     Indication: ANGINA PECTORIS
     Route: 048
     Dates: start: 20030201, end: 20030626
  5. CLARITYNE [Suspect]
     Indication: RHINITIS ALLERGIC
     Route: 048
     Dates: start: 20030522, end: 20030622

REACTIONS (2)
  - RESPIRATORY DISTRESS [None]
  - STEVENS-JOHNSON SYNDROME [None]
